FAERS Safety Report 20304980 (Version 1)
Quarter: 2022Q1

REPORT INFORMATION
  Report Type: Report from Study
  Country: DE (occurrence: DE)
  Receive Date: 20220106
  Receipt Date: 20220106
  Transmission Date: 20220424
  Serious: Yes (Other)
  Sender: FDA-Public Use
  Company Number: DE-MYLANLABS-2022M1001125

PATIENT
  Age: 1 Decade
  Sex: Male

DRUGS (6)
  1. VALPROIC ACID [Suspect]
     Active Substance: VALPROIC ACID
     Indication: Epilepsy
     Dosage: UNK
     Route: 065
  2. VALPROIC ACID [Suspect]
     Active Substance: VALPROIC ACID
     Indication: Tuberous sclerosis complex
  3. VIGABATRIN [Suspect]
     Active Substance: VIGABATRIN
     Indication: Epilepsy
     Dosage: UNK
     Route: 065
  4. VIGABATRIN [Suspect]
     Active Substance: VIGABATRIN
     Indication: Tuberous sclerosis complex
  5. EVEROLIMUS [Concomitant]
     Active Substance: EVEROLIMUS
     Indication: Epilepsy
     Dosage: 1 MILLIGRAM/SQ. METER
     Route: 048
  6. EVEROLIMUS [Concomitant]
     Active Substance: EVEROLIMUS
     Indication: Tuberous sclerosis complex
     Dosage: THE DOSE WAS SCHEDULED TO BE INCREASED FURTHER
     Route: 048

REACTIONS (1)
  - Drug ineffective [Unknown]
